FAERS Safety Report 10005151 (Version 1)
Quarter: 2014Q1

REPORT INFORMATION
  Report Type: Spontaneous
  Country: US (occurrence: US)
  Receive Date: 20140312
  Receipt Date: 20140312
  Transmission Date: 20141002
  Serious: Yes (Other)
  Sender: FDA-Public Use
  Company Number: PHHY2014US026483

PATIENT
  Age: 44 Year
  Sex: Female

DRUGS (1)
  1. HEPARIN [Suspect]
     Indication: THROMBOSIS PROPHYLAXIS

REACTIONS (5)
  - Respiratory depression [Recovered/Resolved]
  - Heparin-induced thrombocytopenia [Recovered/Resolved]
  - Platelet count decreased [Recovered/Resolved]
  - Hypercoagulation [Recovered/Resolved]
  - Thrombosis [Recovered/Resolved]
